FAERS Safety Report 21467184 (Version 1)
Quarter: 2022Q4

REPORT INFORMATION
  Report Type: Spontaneous
  Country: US (occurrence: None)
  Receive Date: 20221015
  Receipt Date: 20221015
  Transmission Date: 20230112
  Serious: Yes (Disabling, Congenital Anomaly)
  Sender: FDA-Public Use
  Company Number: None

PATIENT
  Age: 42 Year
  Sex: Male
  Weight: 78.02 kg

DRUGS (4)
  1. VIVITROL [Suspect]
     Active Substance: NALTREXONE
     Dates: start: 20200615, end: 20201010
  2. Lexapro 25 mg [Concomitant]
  3. TIZANIDINE [Concomitant]
     Active Substance: TIZANIDINE
  4. 4mg for muscle spasms and spine [Concomitant]

REACTIONS (8)
  - Syncope [None]
  - Nausea [None]
  - Dizziness [None]
  - Headache [None]
  - Liver disorder [None]
  - Pancreatic disorder [None]
  - Cerebral mass effect [None]
  - Brain neoplasm [None]

NARRATIVE: CASE EVENT DATE: 20200615
